FAERS Safety Report 4448428-8 (Version None)
Quarter: 2004Q3

REPORT INFORMATION
  Report Type: 
  Country: None (occurrence: None)
  Receive Date: 20040729
  Receipt Date: 20031001
  Transmission Date: 20050211
  Serious: Yes (Other)
  Sender: FDA-Public Use
  Company Number: NSADSS2003022721

PATIENT
  Age: 43 Year
  Sex: Male
  Weight: 130.6359 kg

DRUGS (5)
  1. RISPERDAL [Suspect]
     Indication: PSYCHOTIC DISORDER
     Dosage: SEE IMAGE
     Route: 048
     Dates: start: 20010301
  2. ZOLOFT [Concomitant]
  3. BENADRYL [Concomitant]
  4. DESYREL [Concomitant]
  5. ATARAX [Concomitant]

REACTIONS (1)
  - THROMBOCYTOPENIA [None]
